FAERS Safety Report 10928950 (Version 2)
Quarter: 2015Q2

REPORT INFORMATION
  Report Type: Spontaneous
  Country: US (occurrence: US)
  Receive Date: 20150319
  Receipt Date: 20150524
  Transmission Date: 20150821
  Serious: No
  Sender: FDA-Public Use
  Company Number: US-JNJFOC-20141010045

PATIENT

DRUGS (3)
  1. METHYLPHENIDATE HYDROCHLORIDE. [Suspect]
     Active Substance: METHYLPHENIDATE HYDROCHLORIDE
     Indication: FATIGUE
     Dosage: THREE TABLETS OF 18 MG
     Route: 048
  2. METHYLPHENIDATE HYDROCHLORIDE. [Suspect]
     Active Substance: METHYLPHENIDATE HYDROCHLORIDE
     Indication: FATIGUE
     Dosage: ONE TABLET A DAY
     Route: 048
  3. METHYLPHENIDATE HYDROCHLORIDE. [Suspect]
     Active Substance: METHYLPHENIDATE HYDROCHLORIDE
     Indication: FATIGUE
     Dosage: TWO TABLETS OF 18 MG
     Route: 048

REACTIONS (11)
  - Headache [Unknown]
  - Libido decreased [Unknown]
  - Decreased appetite [Unknown]
  - Dizziness [Unknown]
  - Insomnia [Unknown]
  - Heart rate irregular [Unknown]
  - Product use issue [Unknown]
  - Nervousness [Unknown]
  - Vomiting [Unknown]
  - Tremor [Unknown]
  - Abdominal pain [Unknown]
